FAERS Safety Report 17449527 (Version 1)
Quarter: 2020Q1

REPORT INFORMATION
  Report Type: Spontaneous
  Country: US (occurrence: US)
  Receive Date: 20200207
  Receipt Date: 20200207
  Transmission Date: 20200409
  Serious: No
  Sender: FDA-Public Use
  Company Number: None

PATIENT
  Age: 51 Year
  Sex: Female

DRUGS (2)
  1. PIQRAY [Suspect]
     Active Substance: ALPELISIB
     Indication: BREAST CANCER
     Route: 048
     Dates: start: 202001, end: 202002
  2. ZOLADEX [Concomitant]
     Active Substance: GOSERELIN ACETATE

REACTIONS (1)
  - Rash [None]

NARRATIVE: CASE EVENT DATE: 20200207
